FAERS Safety Report 16834914 (Version 1)
Quarter: 2019Q3

REPORT INFORMATION
  Report Type: Spontaneous
  Country: FR (occurrence: FR)
  Receive Date: 20190920
  Receipt Date: 20190920
  Transmission Date: 20191005
  Serious: Yes (Other)
  Sender: FDA-Public Use
  Company Number: FR-MYLANLABS-2019M1088345

PATIENT
  Sex: Female

DRUGS (2)
  1. BUPIVACAINE MYLAN 20 MG/4 ML, SPINAL INJECTION [Suspect]
     Active Substance: BUPIVACAINE
     Indication: GENERAL ANAESTHESIA
     Dosage: UNK
     Route: 050
  2. MORPHINE [Concomitant]
     Active Substance: MORPHINE
     Dosage: UNK
     Route: 065

REACTIONS (2)
  - Product use issue [Unknown]
  - Drug ineffective [Unknown]

NARRATIVE: CASE EVENT DATE: 20190911
